FAERS Safety Report 24260218 (Version 1)
Quarter: 2024Q3

REPORT INFORMATION
  Report Type: Spontaneous
  Country: US (occurrence: US)
  Receive Date: 20240828
  Receipt Date: 20240828
  Transmission Date: 20241017
  Serious: No
  Sender: SANOFI AVENTIS
  Company Number: US-SANOFI-02186323

PATIENT
  Age: 69 Year
  Sex: Male
  Weight: 86.18 kg

DRUGS (1)
  1. DUPIXENT [Suspect]
     Active Substance: DUPILUMAB
     Dosage: 600 MG, 1X
     Dates: start: 20240803, end: 20240803

REACTIONS (7)
  - Swelling face [Recovering/Resolving]
  - Lacrimation increased [Not Recovered/Not Resolved]
  - Skin tightness [Not Recovered/Not Resolved]
  - Eye disorder [Unknown]
  - Skin discolouration [Recovered/Resolved]
  - Swelling of eyelid [Recovering/Resolving]
  - Vision blurred [Not Recovered/Not Resolved]

NARRATIVE: CASE EVENT DATE: 20240801
